FAERS Safety Report 5051780-6 (Version None)
Quarter: 2006Q3

REPORT INFORMATION
  Report Type: 
  Country: None (occurrence: None)
  Receive Date: 20060714
  Receipt Date: 20060714
  Transmission Date: 20061208
  Serious: No
  Sender: FDA-Public Use
  Company Number: None

PATIENT
  Age: 56 Year
  Sex: Female
  Weight: 70.3075 kg

DRUGS (1)
  1. LIPITOR [Suspect]
     Indication: LOW DENSITY LIPOPROTEIN INCREASED
     Dosage: 20 MG ONCE/DAILY PO
     Route: 048
     Dates: start: 20060703, end: 20060707

REACTIONS (4)
  - FATIGUE [None]
  - IRRITABILITY [None]
  - MUSCLE SPASMS [None]
  - MYALGIA [None]
